FAERS Safety Report 13097277 (Version 5)
Quarter: 2021Q4

REPORT INFORMATION
  Report Type: Report from Study
  Country: US (occurrence: US)
  Receive Date: 20170109
  Receipt Date: 20211213
  Transmission Date: 20220303
  Serious: Yes (Death, Hospitalization, Other)
  Sender: FDA-Public Use
  Company Number: US-PFIZER INC-2017000938

PATIENT
  Age: 72 Year
  Sex: Male
  Weight: 84.3 kg

DRUGS (4)
  1. SPIRONOLACTONE [Suspect]
     Active Substance: SPIRONOLACTONE
     Indication: Oedema
     Dosage: 25 MG, BY MOUTH DAILY
     Route: 048
     Dates: start: 20160729, end: 20161204
  2. CRIZOTINIB [Suspect]
     Active Substance: CRIZOTINIB
     Indication: Adenocarcinoma gastric
     Dosage: 250 MG, TWICE DAILY (CYCLE: 28 DAYS)
     Route: 048
     Dates: start: 20160803, end: 20161204
  3. LASIX [Suspect]
     Active Substance: FUROSEMIDE
     Indication: Oedema
     Dosage: 20 MG, BY MOUTH DAILY
     Route: 048
     Dates: start: 20160702, end: 20161204
  4. OPDIVO [Suspect]
     Active Substance: NIVOLUMAB
     Indication: Adenocarcinoma gastric
     Dosage: 240 MG, EVERY 2 WEEKS
     Route: 042
     Dates: start: 20161216, end: 20161216

REACTIONS (4)
  - Cardiac arrest [Fatal]
  - Hyponatraemia [Not Recovered/Not Resolved]
  - Ascites [Not Recovered/Not Resolved]
  - Hypoalbuminaemia [Not Recovered/Not Resolved]

NARRATIVE: CASE EVENT DATE: 20161204
